FAERS Safety Report 25326422 (Version 1)
Quarter: 2025Q2

REPORT INFORMATION
  Report Type: Spontaneous
  Country: US (occurrence: US)
  Receive Date: 20250516
  Receipt Date: 20250516
  Transmission Date: 20250716
  Serious: Yes (Other)
  Sender: PURDUE
  Company Number: US-PURDUE PHARMA-USA-2025-0317495

PATIENT
  Sex: Male

DRUGS (9)
  1. OXYCONTIN [Suspect]
     Active Substance: OXYCODONE HYDROCHLORIDE
     Indication: Lumbar spinal stenosis
     Dosage: 20 MILLIGRAM, BID (1 TABLET)
     Route: 048
     Dates: start: 20130819
  2. OXYCONTIN [Suspect]
     Active Substance: OXYCODONE HYDROCHLORIDE
     Indication: Breakthrough pain
     Dosage: 20 MILLIGRAM, BID
     Route: 048
  3. OXYCODONE HYDROCHLORIDE [Suspect]
     Active Substance: OXYCODONE HYDROCHLORIDE
     Indication: Breakthrough pain
     Route: 065
  4. PERCOCET [Concomitant]
     Active Substance: ACETAMINOPHEN\OXYCODONE HYDROCHLORIDE
     Indication: Lumbar spinal stenosis
     Route: 048
     Dates: start: 20130819
  5. CEFIXIME [Concomitant]
     Active Substance: CEFIXIME
     Indication: Lumbar spinal stenosis
     Route: 048
     Dates: start: 20130808
  6. CEFIXIME [Concomitant]
     Active Substance: CEFIXIME
     Route: 048
  7. BACLOFEN [Concomitant]
     Active Substance: BACLOFEN
     Indication: Product used for unknown indication
     Dosage: 20 MILLIGRAM, TID (1 TABLET)
     Route: 048
     Dates: start: 20130808
  8. GABAPENTIN [Concomitant]
     Active Substance: GABAPENTIN
     Indication: Lumbar spinal stenosis
     Dosage: 300 MILLIGRAM, TID (1 CAPSULE)
     Route: 048
     Dates: start: 20130827
  9. GABAPENTIN [Concomitant]
     Active Substance: GABAPENTIN
     Indication: Breakthrough pain

REACTIONS (5)
  - Overdose [Unknown]
  - Drug dependence [Unknown]
  - Impaired work ability [Unknown]
  - Loss of personal independence in daily activities [Unknown]
  - Impaired quality of life [Unknown]
